FAERS Safety Report 6686036-9 (Version None)
Quarter: 2010Q2

REPORT INFORMATION
  Report Type: 
  Country: None (occurrence: None)
  Receive Date: 20100415
  Receipt Date: 20100415
  Transmission Date: 20101027
  Serious: No
  Sender: FDA-Public Use
  Company Number: None

PATIENT
  Sex: Female
  Weight: 3.78 kg

DRUGS (1)
  1. GENTAK [Suspect]
     Indication: PROPHYLAXIS
     Dosage: 1 ONCE OPHTHALMIC
     Route: 047
     Dates: start: 20091119, end: 20091119

REACTIONS (1)
  - ERYTHEMA [None]
